FAERS Safety Report 9349515 (Version 1)
Quarter: 2013Q2

REPORT INFORMATION
  Report Type: Spontaneous
  Country: US (occurrence: US)
  Receive Date: 20130614
  Receipt Date: 20130614
  Transmission Date: 20140414
  Serious: Yes (Hospitalization, Other)
  Sender: FDA-Public Use
  Company Number: US-ELI_LILLY_AND_COMPANY-US201306002218

PATIENT
  Sex: Male

DRUGS (11)
  1. HUMALOG 25% LISPRO, 75% NPL [Suspect]
     Dosage: 60 U, EACH MORNING
     Dates: start: 2003
  2. HUMALOG 25% LISPRO, 75% NPL [Suspect]
     Dosage: 60 U, EACH EVENING
     Dates: start: 2003
  3. HUMALOG LISPRO [Suspect]
     Indication: TYPE 1 DIABETES MELLITUS
     Dosage: 10 U, QD
     Dates: start: 2003
  4. SIMVASTATIN [Concomitant]
     Dosage: 20 MG, QD
  5. METOPROLOL [Concomitant]
     Dosage: 25 MG, BID
  6. GLIPIZIDE [Concomitant]
     Dosage: 10 MG, BID
  7. WARFARIN [Concomitant]
     Dosage: 12.5 MG, QD
  8. LIPITOR [Concomitant]
     Dosage: 20 MG, QD
  9. LISINOPRIL                              /USA/ [Concomitant]
     Dosage: 2.5 MG, QD
  10. OMEPRAZOLE [Concomitant]
     Dosage: 20 MG, QD
  11. CYMBALTA [Concomitant]
     Dosage: 60 MG, QD

REACTIONS (3)
  - Cerebrovascular accident [Unknown]
  - Memory impairment [Unknown]
  - Drug dose omission [Unknown]
